FAERS Safety Report 12413513 (Version 6)
Quarter: 2016Q4

REPORT INFORMATION
  Report Type: Spontaneous
  Country: JP (occurrence: JP)
  Receive Date: 20160527
  Receipt Date: 20161118
  Transmission Date: 20170207
  Serious: Yes (Life-Threatening, Hospitalization, Disabling, Other)
  Sender: FDA-Public Use
  Company Number: JP-009507513-1605JPN011421

PATIENT
  Age: 76 Year
  Sex: Female

DRUGS (5)
  1. TEMODAL [Suspect]
     Active Substance: TEMOZOLOMIDE
     Indication: GLIOBLASTOMA MULTIFORME
     Dosage: 100 MG, QD
     Route: 041
     Dates: start: 20140910, end: 20140912
  2. TEMODAL [Suspect]
     Active Substance: TEMOZOLOMIDE
     Dosage: 100 MG, QD
     Route: 041
     Dates: start: 20140922, end: 20140922
  3. TEMODAL [Suspect]
     Active Substance: TEMOZOLOMIDE
     Dosage: 100 MG, QD
     Route: 041
     Dates: start: 20140924, end: 20140926
  4. TEMODAL [Suspect]
     Active Substance: TEMOZOLOMIDE
     Dosage: 100 MG, QD
     Route: 041
     Dates: start: 20140916, end: 20140919
  5. TEMODAL [Suspect]
     Active Substance: TEMOZOLOMIDE
     Dosage: 200 MG, QD
     Route: 041
     Dates: start: 20141117, end: 20141121

REACTIONS (4)
  - Meningitis bacterial [Recovered/Resolved]
  - Platelet count decreased [Unknown]
  - Brain abscess [Recovered/Resolved]
  - Subcutaneous abscess [Recovered/Resolved]

NARRATIVE: CASE EVENT DATE: 20140926
